FAERS Safety Report 18325743 (Version 6)
Quarter: 2021Q1

REPORT INFORMATION
  Report Type: Spontaneous
  Country: US (occurrence: US)
  Receive Date: 20200929
  Receipt Date: 20210119
  Transmission Date: 20210419
  Serious: Yes (Other)
  Sender: FDA-Public Use
  Company Number: US-PFIZER INC-2020368589

PATIENT
  Age: 75 Year
  Sex: Female
  Weight: 59.87 kg

DRUGS (3)
  1. PREMARIN [Suspect]
     Active Substance: ESTROGENS, CONJUGATED
     Indication: HYSTERECTOMY
     Dosage: 0.5 G, 2X/WEEK
     Route: 067
  2. PREMARIN [Suspect]
     Active Substance: ESTROGENS, CONJUGATED
     Dosage: 0.5 G, DAILY (EVERY NIGHT FOR 30 DAYS)
     Route: 067
     Dates: start: 20200922
  3. PREMARIN [Suspect]
     Active Substance: ESTROGENS, CONJUGATED
     Indication: INADEQUATE LUBRICATION
     Dosage: UNK
     Dates: start: 2005

REACTIONS (9)
  - Arthritis [Unknown]
  - Vaginal lesion [Not Recovered/Not Resolved]
  - Device issue [Unknown]
  - Balance disorder [Unknown]
  - Vaginal prolapse [Not Recovered/Not Resolved]
  - Off label use [Unknown]
  - Vaginal haemorrhage [Not Recovered/Not Resolved]
  - Body height decreased [Unknown]
  - Bladder prolapse [Not Recovered/Not Resolved]

NARRATIVE: CASE EVENT DATE: 2005
